FAERS Safety Report 6904034-4 (Version None)
Quarter: 2010Q3

REPORT INFORMATION
  Report Type: 
  Country: None (occurrence: None)
  Receive Date: 20100804
  Receipt Date: 20090226
  Transmission Date: 20110219
  Serious: No
  Sender: FDA-Public Use
  Company Number: US-PFIZER INC-2009159999

PATIENT
  Age: 72 Year
  Weight: 74.8 kg

DRUGS (1)
  1. LYRICA [Suspect]
     Indication: RADICULOPATHY
     Dosage: 50 MG, 2X/DAY
     Dates: start: 20080601

REACTIONS (1)
  - ALOPECIA [None]
